FAERS Safety Report 6140565-5 (Version None)
Quarter: 2009Q2

REPORT INFORMATION
  Report Type: 
  Country: None (occurrence: None)
  Receive Date: 20090402
  Receipt Date: 20090324
  Transmission Date: 20091009
  Serious: Yes (Hospitalization, Other)
  Sender: FDA-Public Use
  Company Number: PHEH2009US02967

PATIENT
  Sex: Male

DRUGS (2)
  1. ENTACAPONE [Suspect]
     Indication: PARKINSON'S DISEASE
     Dosage: 200 MG, UNK
  2. CARBIDOPA + LEVODOPA [Suspect]
     Indication: PARKINSON'S DISEASE
     Dosage: 25/100 MG, 1 1/2 TABLETS FIVE TIMES A DAY
     Dates: start: 19980101

REACTIONS (2)
  - CONVULSION [None]
  - RENAL IMPAIRMENT [None]
